FAERS Safety Report 4437817-3 (Version None)
Quarter: 2004Q3

REPORT INFORMATION
  Report Type: 
  Country: None (occurrence: None)
  Receive Date: 20040728
  Receipt Date: 20040305
  Transmission Date: 20050211
  Serious: No
  Sender: FDA-Public Use
  Company Number: USA040361123

PATIENT
  Age: 12 Year
  Sex: Male
  Weight: 34 kg

DRUGS (2)
  1. STRATTERA [Suspect]
     Dosage: 25 MG/L IN THE MORNING
     Dates: start: 20040224
  2. ADDERALL 10 [Concomitant]

REACTIONS (3)
  - AGGRESSION [None]
  - ANGER [None]
  - NERVOUSNESS [None]
